FAERS Safety Report 6522088-4 (Version None)
Quarter: 2009Q4

REPORT INFORMATION
  Report Type: 
  Country: None (occurrence: None)
  Receive Date: 20091230
  Receipt Date: 20091223
  Transmission Date: 20100525
  Serious: Yes (Hospitalization)
  Sender: FDA-Public Use
  Company Number: PHHO2009IT12580

PATIENT
  Sex: Male
  Weight: 72 kg

DRUGS (2)
  1. CERTICAN [Suspect]
     Indication: RENAL TRANSPLANT
     Dosage: 1.75 MG DAILY DOSE
     Route: 048
     Dates: start: 20090921
  2. SOLU-MEDROL [Concomitant]

REACTIONS (2)
  - RENAL IMPAIRMENT [None]
  - TRANSPLANT REJECTION [None]
